FAERS Safety Report 10097584 (Version 1)
Quarter: 2014Q2

REPORT INFORMATION
  Report Type: Spontaneous
  Country: US (occurrence: US)
  Receive Date: 20140423
  Receipt Date: 20140423
  Transmission Date: 20141212
  Serious: No
  Sender: FDA-Public Use
  Company Number: US-BIOGENIDEC-2014BI030949

PATIENT
  Age: 51 Year
  Sex: Female

DRUGS (14)
  1. TECFIDERA [Suspect]
     Indication: MULTIPLE SCLEROSIS
     Route: 048
     Dates: start: 20140327
  2. TECFIDERA [Suspect]
     Indication: MULTIPLE SCLEROSIS
     Route: 048
     Dates: start: 20140327
  3. ROBAXIN [Concomitant]
  4. METOPROLOL TARTRATE [Concomitant]
  5. LISINOPRIL-HCTZ [Concomitant]
  6. BACLOFEN [Concomitant]
  7. ASPIRIN HYDROCODONE [Concomitant]
  8. OXYBUTYNIN [Concomitant]
  9. ALEVE [Concomitant]
  10. VITAMIN D [Concomitant]
  11. LOPRESSOR [Concomitant]
  12. HYDROCHLOROTHIAZIDE [Concomitant]
  13. MOBIC [Concomitant]
  14. COZAAR [Concomitant]

REACTIONS (3)
  - Muscle spasms [Unknown]
  - Flushing [Unknown]
  - Diarrhoea [Unknown]
